FAERS Safety Report 22051651 (Version 1)
Quarter: 2023Q1

REPORT INFORMATION
  Report Type: Spontaneous
  Country: US (occurrence: US)
  Receive Date: 20230302
  Receipt Date: 20230302
  Transmission Date: 20230417
  Serious: No
  Sender: FDA-Public Use
  Company Number: US-AMGEN-USASP2023033904

PATIENT

DRUGS (7)
  1. ARANESP [Suspect]
     Active Substance: DARBEPOETIN ALFA
     Indication: Product used for unknown indication
     Route: 065
  2. AIMOVIG [Suspect]
     Active Substance: ERENUMAB-AOOE
     Indication: Product used for unknown indication
     Route: 065
  3. NEULASTA [Suspect]
     Active Substance: PEGFILGRASTIM
     Indication: Product used for unknown indication
     Dosage: UNK
     Route: 065
  4. NEULASTA [Suspect]
     Active Substance: PEGFILGRASTIM
     Dosage: UNK
     Route: 065
  5. NEUPOGEN [Suspect]
     Active Substance: FILGRASTIM
     Indication: Product used for unknown indication
     Dosage: UNK
     Route: 065
  6. NEUPOGEN [Suspect]
     Active Substance: FILGRASTIM
     Dosage: SINGLE DOSE VIAL
     Route: 065
  7. NEUPOGEN [Suspect]
     Active Substance: FILGRASTIM
     Dosage: PLASTIC DISPOSABLE SYRINGE
     Route: 065

REACTIONS (2)
  - Product temperature excursion issue [Unknown]
  - Circumstance or information capable of leading to medication error [Unknown]
